FAERS Safety Report 7268574-3 (Version None)
Quarter: 2010Q4

REPORT INFORMATION
  Report Type: 
  Country: None (occurrence: None)
  Receive Date: 20101206
  Receipt Date: 20100823
  Transmission Date: 20110411
  Serious: No
  Sender: FDA-Public Use
  Company Number: 2010SP045575

PATIENT
  Age: 25 Year
  Sex: Male

DRUGS (2)
  1. SAPHRIS [Suspect]
     Indication: SCHIZOPHRENIA
     Dosage: 5 MG, BID, SL; 10 MG, BID, SL;
     Route: 060
     Dates: end: 20100101
  2. SAPHRIS [Suspect]
     Indication: SCHIZOPHRENIA
     Dosage: 5 MG, BID, SL; 10 MG, BID, SL;
     Route: 060
     Dates: start: 20100101

REACTIONS (2)
  - DRUG INEFFECTIVE [None]
  - INSOMNIA [None]
